FAERS Safety Report 12156824 (Version 4)
Quarter: 2016Q2

REPORT INFORMATION
  Report Type: Report from Study
  Country: HU (occurrence: HU)
  Receive Date: 20160307
  Receipt Date: 20160513
  Transmission Date: 20160815
  Serious: Yes (Hospitalization)
  Sender: FDA-Public Use
  Company Number: HU-ROCHE-1720928

PATIENT
  Age: 59 Year
  Sex: Female

DRUGS (15)
  1. NOSPANAS [Concomitant]
     Route: 065
  2. VEMURAFENIB [Suspect]
     Active Substance: VEMURAFENIB
     Indication: METASTATIC MALIGNANT MELANOMA
     Route: 048
     Dates: start: 20160216, end: 20160301
  3. RABYPREX [Concomitant]
     Route: 048
  4. SEDUXEN [Concomitant]
     Route: 065
  5. BETALOC ZOK [Concomitant]
     Active Substance: METOPROLOL SUCCINATE
     Indication: HYPERTENSION
     Route: 048
  6. ADEXOR [Concomitant]
     Indication: CORONARY ARTERY DISEASE
     Route: 048
  7. LUMIGAN [Concomitant]
     Active Substance: BIMATOPROST
     Route: 047
  8. CATAFLAM [Concomitant]
     Active Substance: DICLOFENAC POTASSIUM
     Route: 065
  9. XETER [Concomitant]
     Indication: HYPERCHOLESTEROLAEMIA
     Route: 048
  10. BETOPTIC [Concomitant]
     Active Substance: BETAXOLOL HYDROCHLORIDE
     Route: 047
  11. ALGOPYRIN [Concomitant]
     Active Substance: METAMIZOLE SODIUM
     Route: 065
  12. ROWATINEX (HUNGARY) [Concomitant]
  13. COBIMETINIB [Suspect]
     Active Substance: COBIMETINIB
     Indication: METASTATIC MALIGNANT MELANOMA
     Route: 048
     Dates: start: 20160216, end: 20160301
  14. COAPROVEL [Concomitant]
     Active Substance: HYDROCHLOROTHIAZIDE\IRBESARTAN
     Indication: HYPERTENSION
     Route: 048
  15. MOTILIUM [Concomitant]
     Active Substance: DOMPERIDONE
     Route: 065

REACTIONS (5)
  - Tubulointerstitial nephritis [Recovered/Resolved]
  - Myalgia [Recovered/Resolved]
  - Rash maculo-papular [Recovered/Resolved]
  - Dermatitis acneiform [Recovered/Resolved]
  - Asthenia [Recovered/Resolved]

NARRATIVE: CASE EVENT DATE: 20160226
